FAERS Safety Report 19002077 (Version 1)
Quarter: 2021Q1

REPORT INFORMATION
  Report Type: Spontaneous
  Country: US (occurrence: US)
  Receive Date: 20210312
  Receipt Date: 20210312
  Transmission Date: 20210420
  Serious: Yes (Other)
  Sender: FDA-Public Use
  Company Number: US-STRIDES ARCOLAB LIMITED-2021SP003056

PATIENT
  Age: 8 Decade
  Sex: Female

DRUGS (3)
  1. ERDAFITINIB. [Concomitant]
     Active Substance: ERDAFITINIB
     Indication: CHOLANGIOCARCINOMA
     Dosage: UNK
     Route: 065
  2. VITAMINS NOS [Suspect]
     Active Substance: VITAMINS
     Indication: VITAMIN SUPPLEMENTATION
     Dosage: UNK
     Route: 065
  3. ERGOCALCIFEROL. [Suspect]
     Active Substance: ERGOCALCIFEROL
     Indication: VITAMIN SUPPLEMENTATION
     Dosage: 4000 INTERNATIONAL UNITS DAILY
     Route: 065

REACTIONS (1)
  - Calciphylaxis [Unknown]
